FAERS Safety Report 4970824-0 (Version None)
Quarter: 2006Q2

REPORT INFORMATION
  Report Type: 
  Country: None (occurrence: None)
  Receive Date: 20060412
  Receipt Date: 20040129
  Transmission Date: 20061013
  Serious: Yes (Hospitalization)
  Sender: FDA-Public Use
  Company Number: US-ROCHE-357709

PATIENT
  Sex: Male

DRUGS (1)
  1. CELLCEPT [Suspect]
     Indication: MYASTHENIA GRAVIS
     Route: 065

REACTIONS (3)
  - ABASIA [None]
  - CYTOMEGALOVIRUS INFECTION [None]
  - ORGAN FAILURE [None]
